FAERS Safety Report 10671089 (Version 1)
Quarter: 2014Q4

REPORT INFORMATION
  Report Type: Spontaneous
  Country: GB (occurrence: None)
  Receive Date: 20141219
  Receipt Date: 20141219
  Transmission Date: 20150529
  Serious: Yes (Hospitalization, Other)
  Sender: FDA-Public Use
  Company Number: CL-598-2014

PATIENT
  Age: 14 Year
  Sex: Male
  Weight: 60 kg

DRUGS (2)
  1. METRONIDAZOLE UNK [Suspect]
     Active Substance: METRONIDAZOLE
     Indication: DIARRHOEA
     Dosage: TWICE ONLY
     Route: 042
  2. TRIMETHOPRIM-SULFAMETHOXAZOLE [Concomitant]
     Active Substance: SULFAMETHOXAZOLE\TRIMETHOPRIM

REACTIONS (8)
  - Chest pain [None]
  - Abdominal pain [None]
  - Dyspnoea [None]
  - Rash [None]
  - Aspartate aminotransferase increased [None]
  - Diarrhoea [None]
  - Tachypnoea [None]
  - Kounis syndrome [None]
